FAERS Safety Report 23904883 (Version 1)
Quarter: 2024Q2

REPORT INFORMATION
  Report Type: Spontaneous
  Country: SI (occurrence: SI)
  Receive Date: 20240527
  Receipt Date: 20240527
  Transmission Date: 20240716
  Serious: Yes (Other)
  Sender: FDA-Public Use
  Company Number: None

PATIENT
  Age: 84 Year
  Sex: Male

DRUGS (7)
  1. OFEV [Suspect]
     Active Substance: NINTEDANIB
     Indication: Pulmonary fibrosis
     Dosage: 2X1
     Route: 048
     Dates: start: 202311, end: 202404
  2. ALOPURINOL BELUPO 100 MG [Concomitant]
     Indication: Product used for unknown indication
     Dates: start: 20240219
  3. Trittico 150 MG [Concomitant]
     Indication: Product used for unknown indication
     Dates: start: 20231204
  4. Amoksiklav 875 MG + 125 MG [Concomitant]
     Indication: Product used for unknown indication
     Dosage: STRENGHT: 875 MG/125 MG , 1 SC?DOSE: 2X1
     Dates: start: 20231115
  5. Atacand PLUS 16 MG/12,5 MG [Concomitant]
     Indication: Product used for unknown indication
     Dosage: STRENGHT: 16 MG/12,5 MG
     Dates: start: 20240222
  6. Folacin 5 MG [Concomitant]
     Indication: Product used for unknown indication
     Dates: start: 20231204
  7. ATACAND [Concomitant]
     Active Substance: CANDESARTAN CILEXETIL
     Indication: Product used for unknown indication
     Dates: start: 20240219

REACTIONS (1)
  - Renal impairment [Unknown]

NARRATIVE: CASE EVENT DATE: 20240301
